FAERS Safety Report 10144367 (Version 1)
Quarter: 2014Q2

REPORT INFORMATION
  Report Type: Spontaneous
  Country: US (occurrence: US)
  Receive Date: 20140430
  Receipt Date: 20140430
  Transmission Date: 20141212
  Serious: Yes (Other)
  Sender: FDA-Public Use
  Company Number: US-GILEAD-2014-0101073

PATIENT
  Sex: Female

DRUGS (3)
  1. LETAIRIS [Suspect]
     Indication: PRODUCT USED FOR UNKNOWN INDICATION
     Dosage: 10 MG, QD
     Route: 065
     Dates: start: 20131226
  2. ADCIRCA [Concomitant]
  3. COUMADIN                           /00014802/ [Concomitant]

REACTIONS (5)
  - Syncope [Unknown]
  - Road traffic accident [Unknown]
  - Skeletal injury [Unknown]
  - Seasonal allergy [Unknown]
  - Pain [Unknown]
